FAERS Safety Report 22016149 (Version 1)
Quarter: 2023Q1

REPORT INFORMATION
  Report Type: Spontaneous
  Country: DE (occurrence: DE)
  Receive Date: 20230221
  Receipt Date: 20230221
  Transmission Date: 20230418
  Serious: Yes (Other)
  Sender: FDA-Public Use
  Company Number: DE-CELLTRION HEALTHCARE HUNGARY KFT-2023DE000983

PATIENT
  Age: 30 Year
  Sex: Female

DRUGS (9)
  1. CYTARABINE [Suspect]
     Active Substance: CYTARABINE
     Indication: Angiocentric lymphoma
     Dosage: 3000 MILLIGRAM/SQ. METER R-TT/ARAC
     Route: 065
  2. METHOTREXATE [Suspect]
     Active Substance: METHOTREXATE
     Indication: Angiocentric lymphoma
     Dosage: 4 GRAM PER SQUARE METRE, R-MTX
     Route: 065
  3. CARMUSTINE [Suspect]
     Active Substance: CARMUSTINE
     Indication: Autologous haematopoietic stem cell transplant
     Dosage: 400 MILLIGRAM/SQ. METER  (400 MG/M2 DAY 2)
     Route: 065
  4. CARMUSTINE [Suspect]
     Active Substance: CARMUSTINE
     Indication: Angiocentric lymphoma
  5. RITUXIMAB [Suspect]
     Active Substance: RITUXIMAB
     Indication: Autologous haematopoietic stem cell transplant
     Dosage: 375 MILLIGRAM/SQ. METER, R-MTX
     Route: 065
  6. RITUXIMAB [Suspect]
     Active Substance: RITUXIMAB
     Indication: Angiocentric lymphoma
     Dosage: 375 MILLIGRAM/SQ. METER, R-TT/ARAC
     Route: 065
  7. RITUXIMAB [Suspect]
     Active Substance: RITUXIMAB
     Dosage: 375 MILLIGRAM/SQ. METER 375 MG/M2 (DAY 1)
     Route: 065
  8. THIOTEPA [Suspect]
     Active Substance: THIOTEPA
     Indication: Angiocentric lymphoma
     Dosage: 40 MILLIGRAM/SQ. METER R-TT/ARAC
     Route: 065
  9. THIOTEPA [Suspect]
     Active Substance: THIOTEPA
     Indication: Autologous haematopoietic stem cell transplant
     Dosage: 5 MILLIGRAM/KILOGRAM, 2X5 MG/KG/DAY FOR 2 DAYS
     Route: 042

REACTIONS (2)
  - Infection [Unknown]
  - Off label use [Unknown]
